FAERS Safety Report 18332464 (Version 1)
Quarter: 2020Q4

REPORT INFORMATION
  Report Type: Spontaneous
  Country: FR (occurrence: FR)
  Receive Date: 20201001
  Receipt Date: 20201001
  Transmission Date: 20210113
  Serious: Yes (Other)
  Sender: FDA-Public Use
  Company Number: FR-INGENUS PHARMACEUTICALS, LLC-2020INF000169

PATIENT
  Age: 53 Year
  Sex: Female

DRUGS (4)
  1. CISPLATIN. [Concomitant]
     Active Substance: CISPLATIN
     Indication: METASTASES TO BONE
  2. CISPLATIN. [Concomitant]
     Active Substance: CISPLATIN
     Indication: NON-SMALL CELL LUNG CANCER METASTATIC
     Dosage: UNK, 4 CYCLES OVER THE COURSE OF 2 MONTHS AND 26 DAYS
     Route: 065
  3. GEMCITABINE HYDROCHLORIDE. [Suspect]
     Active Substance: GEMCITABINE HYDROCHLORIDE
     Indication: NON-SMALL CELL LUNG CANCER METASTATIC
     Dosage: 1250 MILLIGRAM/SQ. METER, 4 CYCLES OVER THE COURSE OF 2 MONTHS AND 26 DAYS
     Route: 065
  4. GEMCITABINE HYDROCHLORIDE. [Suspect]
     Active Substance: GEMCITABINE HYDROCHLORIDE
     Indication: METASTASES TO BONE

REACTIONS (1)
  - Myelitis [Not Recovered/Not Resolved]
